FAERS Safety Report 12843782 (Version 1)
Quarter: 2016Q4

REPORT INFORMATION
  Report Type: Spontaneous
  Country: US (occurrence: US)
  Receive Date: 20161013
  Receipt Date: 20161013
  Transmission Date: 20170207
  Serious: Yes (Hospitalization)
  Sender: FDA-Public Use
  Company Number: None

PATIENT
  Age: 49 Year
  Sex: Female

DRUGS (6)
  1. ATORVASTATIN [Concomitant]
     Active Substance: ATORVASTATIN
  2. WARFARIN [Concomitant]
     Active Substance: WARFARIN
  3. MVI [Concomitant]
     Active Substance: VITAMINS
  4. RANITIDINE. [Concomitant]
     Active Substance: RANITIDINE
  5. XOLAIR [Suspect]
     Active Substance: OMALIZUMAB
     Indication: IDIOPATHIC URTICARIA
     Route: 058
     Dates: start: 20160803
  6. ASA [Concomitant]
     Active Substance: ASPIRIN

REACTIONS (3)
  - Pancreatectomy [None]
  - Gastrectomy [None]
  - Splenectomy [None]

NARRATIVE: CASE EVENT DATE: 201607
